FAERS Safety Report 17015071 (Version 1)
Quarter: 2019Q4

REPORT INFORMATION
  Report Type: Spontaneous
  Country: AU (occurrence: AU)
  Receive Date: 20191111
  Receipt Date: 20191111
  Transmission Date: 20200122
  Serious: Yes (Other)
  Sender: FDA-Public Use
  Company Number: NVSC2019AU026309

PATIENT
  Age: 39 Year
  Sex: Female

DRUGS (5)
  1. ENDEP [Suspect]
     Active Substance: AMITRIPTYLINE HYDROCHLORIDE
     Indication: PRODUCT USED FOR UNKNOWN INDICATION
     Dosage: UNK
     Route: 065
  2. METHOTREXATE. [Suspect]
     Active Substance: METHOTREXATE
     Indication: PRODUCT USED FOR UNKNOWN INDICATION
     Dosage: UNK
     Route: 065
  3. PLAQUENIL [Suspect]
     Active Substance: HYDROXYCHLOROQUINE SULFATE
     Indication: PRODUCT USED FOR UNKNOWN INDICATION
     Dosage: UNK
     Route: 065
  4. WARFARIN SODIUM. [Suspect]
     Active Substance: WARFARIN SODIUM
     Indication: PRODUCT USED FOR UNKNOWN INDICATION
     Dosage: UNK
     Route: 065
  5. XOLAIR [Suspect]
     Active Substance: OMALIZUMAB
     Indication: PRODUCT USED FOR UNKNOWN INDICATION
     Dosage: UNK
     Route: 065

REACTIONS (28)
  - Arthritis [Unknown]
  - Blister [Unknown]
  - Pleurisy [Unknown]
  - Pain [Unknown]
  - Device issue [Unknown]
  - Chest pain [Unknown]
  - Injection site bruising [Unknown]
  - Gastric disorder [Unknown]
  - Headache [Unknown]
  - Costochondritis [Unknown]
  - Suffocation feeling [Unknown]
  - Musculoskeletal stiffness [Unknown]
  - Dyspnoea [Unknown]
  - Anaphylactic reaction [Unknown]
  - Cough [Unknown]
  - Fatigue [Unknown]
  - Amnesia [Unknown]
  - Asthma [Unknown]
  - Therapeutic response unexpected [Unknown]
  - Vocal cord dysfunction [Unknown]
  - Photosensitivity reaction [Unknown]
  - Sunburn [Unknown]
  - Pruritus [Unknown]
  - Hypoaesthesia [Unknown]
  - Feeling abnormal [Unknown]
  - Rheumatic disorder [Unknown]
  - Skin exfoliation [Unknown]
  - Nausea [Unknown]
